FAERS Safety Report 8579613-1 (Version None)
Quarter: 2012Q3

REPORT INFORMATION
  Report Type: 
  Country: None (occurrence: None)
  Receive Date: 20120808
  Receipt Date: 20120727
  Transmission Date: 20120928
  Serious: Yes (Hospitalization, Other)
  Sender: FDA-Public Use
  Company Number: FR-CELGENEUS-056-21880-12072355

PATIENT
  Weight: 50 kg

DRUGS (5)
  1. NORVIR [Concomitant]
     Dosage: 100 MILLIGRAM
     Route: 065
     Dates: start: 20090824
  2. REYATAZ [Concomitant]
     Dosage: 300 MILLIGRAM
     Route: 065
     Dates: start: 20090824
  3. ASPIRIN [Concomitant]
     Indication: THROMBOSIS PROPHYLAXIS
     Dosage: 75 MILLIGRAM
     Route: 065
     Dates: start: 20120521
  4. REVLIMID [Suspect]
     Indication: KAPOSI'S SARCOMA
     Dosage: 25 MILLIGRAM
     Route: 048
     Dates: start: 20120521, end: 20120725
  5. ABACAVIR SULFATE/LAMIVUDINE [Concomitant]
     Route: 065
     Dates: start: 20090824

REACTIONS (6)
  - PYREXIA [None]
  - NEUTROPENIA [None]
  - ASTHENIA [None]
  - LYMPHADENOPATHY [None]
  - CHILLS [None]
  - DECREASED APPETITE [None]
